FAERS Safety Report 7576561-0 (Version None)
Quarter: 2011Q2

REPORT INFORMATION
  Report Type: 
  Country: None (occurrence: None)
  Receive Date: 20110628
  Receipt Date: 20101210
  Transmission Date: 20111010
  Serious: Yes (Other)
  Sender: FDA-Public Use
  Company Number: US-BAYER-200940280NA

PATIENT
  Age: 53 Year
  Sex: Male
  Weight: 90.703 kg

DRUGS (32)
  1. METOPROLOL TARTRATE [Concomitant]
     Dosage: 50 MG, QD
  2. AMBIEN [Concomitant]
     Dosage: 10 MG, UNK
  3. CONTRAST MEDIA [Concomitant]
     Indication: CATHETERISATION CARDIAC
     Dosage: UNK
     Dates: start: 20030724
  4. CONTRAST MEDIA [Concomitant]
     Indication: ANGIOGRAM CEREBRAL
     Dosage: UNK
     Dates: start: 20030725
  5. TRASYLOL [Suspect]
     Indication: STERNOTOMY
     Dosage: 200CC, CARDIOPULMONARY BYPASS PRIME
     Route: 042
     Dates: start: 20030731, end: 20030731
  6. PENICILLIN [Concomitant]
     Indication: ANTIBIOTIC PROPHYLAXIS
     Dosage: 500 MG, UNK
     Dates: start: 20030723, end: 20030728
  7. NITROGLYCERIN [Concomitant]
     Dosage: RATE VARIED
     Route: 042
     Dates: start: 20030731
  8. AMPICILLIN SODIUM [Concomitant]
     Dosage: 2 G, DURING TEETH EXTRACTION SURGERY
     Route: 042
     Dates: start: 20030723, end: 20030723
  9. LASIX [Concomitant]
     Indication: CARDIAC FAILURE CONGESTIVE
     Dosage: 40 MG, BID
     Route: 042
     Dates: start: 20030808
  10. LOPRESSOR [Concomitant]
     Dosage: 5 MG UNK, UNK
     Route: 042
     Dates: start: 20030723, end: 20030723
  11. TRASYLOL [Suspect]
     Indication: MITRAL VALVE REPLACEMENT
     Dosage: 1 ML, UNK
     Route: 042
     Dates: start: 20030731
  12. LASIX [Concomitant]
     Dosage: 40 MG DAILY
     Dates: start: 20011203
  13. ACCUPRIL [Concomitant]
     Dosage: 5 MG, QD
  14. HEPARIN [Concomitant]
     Dosage: UNK
     Route: 042
     Dates: start: 20030731
  15. POTASSIUM [Concomitant]
     Dosage: 28 MEQ, EACH NIGHT
  16. TRASYLOL [Suspect]
     Dosage: 200CC LOADING DOSE
     Dates: start: 20030731
  17. ASPIRIN [Concomitant]
     Dosage: 325 MG, UNK
  18. PROTAMINE SULFATE [Concomitant]
     Dosage: 400 MG, UNK
     Route: 042
     Dates: start: 20030731
  19. TRASYLOL [Suspect]
     Dosage: 50CC/HR
     Dates: start: 20030731
  20. MANNITOL [Concomitant]
  21. LIDOCAINE [Concomitant]
  22. SODIUM NITROPRUSSIDE [Concomitant]
     Dosage: UNK
     Route: 042
     Dates: start: 20030731
  23. MIDAZOLAM HCL [Concomitant]
     Dosage: UNK
     Route: 042
     Dates: start: 20030731
  24. CONTRAST MEDIA [Concomitant]
     Dosage: UNK
     Dates: start: 20011203
  25. ROCURONIUM BROMIDE [Concomitant]
  26. VERPAMIL HCL [Concomitant]
     Indication: CLUSTER HEADACHE
     Dosage: UNK
  27. LOVENOX [Concomitant]
     Dosage: 90 MG, UNK
     Route: 048
     Dates: start: 20030723
  28. CEFAZOLIN [Concomitant]
     Indication: ANTIBIOTIC PROPHYLAXIS
     Dosage: 2 G, UNK
     Route: 042
     Dates: start: 20030731
  29. PLATELETS [Concomitant]
     Dosage: 421 ML, UNK
     Dates: start: 20030731, end: 20030731
  30. MAGNESIUM SULFATE [Concomitant]
     Dosage: UNK
     Route: 042
     Dates: start: 20030731
  31. FENTANYL [Concomitant]
     Dosage: UNK
     Route: 042
     Dates: start: 20030731
  32. FORANE [Concomitant]
     Dosage: UNK
     Route: 042
     Dates: start: 20030723

REACTIONS (12)
  - UNEVALUABLE EVENT [None]
  - RENAL INJURY [None]
  - ANXIETY [None]
  - RENAL FAILURE [None]
  - FEAR [None]
  - PAIN [None]
  - INJURY [None]
  - RENAL IMPAIRMENT [None]
  - STRESS [None]
  - EMOTIONAL DISTRESS [None]
  - ANHEDONIA [None]
  - PSYCHIATRIC SYMPTOM [None]
